FAERS Safety Report 17605441 (Version 5)
Quarter: 2024Q4

REPORT INFORMATION
  Report Type: Spontaneous
  Country: US (occurrence: US)
  Receive Date: 20200331
  Receipt Date: 20241212
  Transmission Date: 20250114
  Serious: Yes (Hospitalization)
  Sender: SANOFI AVENTIS
  Company Number: US-SA-2020SA077955

PATIENT
  Age: 68 Year
  Sex: Female

DRUGS (13)
  1. DUPIXENT [Suspect]
     Active Substance: DUPILUMAB
     Indication: Asthma
     Dosage: 600 MG, 1X
     Route: 058
     Dates: start: 202002, end: 202002
  2. DUPIXENT [Suspect]
     Active Substance: DUPILUMAB
     Dosage: 300 MG, QOW
     Route: 058
     Dates: start: 2020
  3. GABAPENTIN [Concomitant]
     Active Substance: GABAPENTIN
  4. FLUTICASONE [Concomitant]
     Active Substance: FLUTICASONE
  5. SUCRALFATE [Concomitant]
     Active Substance: SUCRALFATE
  6. LIDOCAINE [Concomitant]
     Active Substance: LIDOCAINE
  7. MELOXICAM [Concomitant]
     Active Substance: MELOXICAM
     Dosage: UNK
  8. ATORVASTATIN [Concomitant]
     Active Substance: ATORVASTATIN
  9. ADBRY [Concomitant]
     Active Substance: TRALOKINUMAB-LDRM
  10. DOXYCYCLINE [Concomitant]
     Active Substance: DOXYCYCLINE
  11. OMEPRAZOLE [Concomitant]
     Active Substance: OMEPRAZOLE
     Dosage: UNK
  12. ALPRAZOLAM [Concomitant]
     Active Substance: ALPRAZOLAM
     Dosage: UNK
  13. METHIMAZOLE [Concomitant]
     Active Substance: METHIMAZOLE
     Dosage: UNK

REACTIONS (4)
  - Skin disorder [Unknown]
  - Viral infection [Unknown]
  - Nasopharyngitis [Unknown]
  - Rash [Recovered/Resolved]

NARRATIVE: CASE EVENT DATE: 20200101
